FAERS Safety Report 9827162 (Version 1)
Quarter: 2013Q4

REPORT INFORMATION
  Report Type: Spontaneous
  Country: US (occurrence: None)
  Receive Date: 20131223
  Receipt Date: 20131223
  Transmission Date: 20140711
  Serious: No
  Sender: FDA-Public Use
  Company Number: 220982LEO

PATIENT
  Sex: Male

DRUGS (5)
  1. PICATO [Suspect]
     Indication: PHOTOSENSITIVITY REACTION
     Route: 061
     Dates: start: 20130315, end: 20130317
  2. PICATO [Suspect]
     Indication: EAR DISORDER
     Route: 061
     Dates: start: 20130315, end: 20130317
  3. ATENOLOL (ATENOLOL) [Concomitant]
  4. ALLOPURINOL (ALLOPURINOL) [Concomitant]
  5. HYDROCHLOROTHIAZIDE (HYDROCHLOROTHIAZIDE) [Concomitant]

REACTIONS (2)
  - Application site pruritus [None]
  - Drug administered at inappropriate site [None]
